FAERS Safety Report 7725951-1 (Version None)
Quarter: 2011Q3

REPORT INFORMATION
  Report Type: 
  Country: None (occurrence: None)
  Receive Date: 20110902
  Receipt Date: 20110826
  Transmission Date: 20111222
  Serious: Yes (Hospitalization)
  Sender: FDA-Public Use
  Company Number: FR-PURDUE-GBR-2011-0008735

PATIENT
  Sex: Female

DRUGS (4)
  1. ONDANSETRON [Suspect]
     Indication: NAUSEA
     Dosage: 1 DF DAILY
     Route: 042
     Dates: start: 20110529
  2. DROPERIDOL [Suspect]
     Indication: NAUSEA
     Dosage: 1.25 MG, DAILY
     Route: 042
     Dates: start: 20110529
  3. OXYCODONE HCL [Suspect]
     Indication: NEURALGIA
     Dosage: 5 MG, DAILY
     Route: 048
     Dates: start: 20110529
  4. AMITRIPTYLINE HCL [Suspect]
     Indication: NEURALGIA
     Dosage: 40 MG/ML, BID
     Route: 048
     Dates: start: 20110529

REACTIONS (9)
  - HYPERHIDROSIS [None]
  - FEELING OF BODY TEMPERATURE CHANGE [None]
  - SPEECH DISORDER [None]
  - NAUSEA [None]
  - VERTIGO [None]
  - PARAESTHESIA [None]
  - RESPIRATORY DEPRESSION [None]
  - MUSCULAR WEAKNESS [None]
  - ASTHENIA [None]
